FAERS Safety Report 8179736 (Version 2)
Quarter: 2013Q4

REPORT INFORMATION
  Report Type: Spontaneous
  Country: US (occurrence: None)
  Receive Date: 20110930
  Receipt Date: 20131009
  Transmission Date: 20140711
  Serious: Yes (Hospitalization, Other)
  Sender: FDA-Public Use
  Company Number: CIP11000560

PATIENT
  Age: 63 Year
  Sex: Female
  Weight: 71.2 kg

DRUGS (25)
  1. ACTONEL [Suspect]
     Indication: OSTEOPOROSIS POSTMENOPAUSAL
     Dosage: 150 MG ONCE MONTHLY, ORAL
     Route: 048
     Dates: start: 20090505
  2. FOSAMAX PLUS D [Suspect]
     Indication: OSTEOPENIA
     Dosage: 70 MG ONCE WEEKLY, ORAL
     Route: 048
     Dates: end: 20090428
  3. PREVACID [Concomitant]
  4. HYDROXYCHLOROQUINE SULFATE [Concomitant]
  5. LORTAB /0060701/ (HYDROCODONE BITARTRATE, PARACETAMOL) [Concomitant]
  6. PERCOCET /00867901/ (OXYCODONE HYDROHCLORIDE, PARACETAMOL) [Concomitant]
  7. ATENOLOL (ATENOLOL) [Concomitant]
  8. CLONAZEPAM [Concomitant]
  9. TOPAMAX [Concomitant]
  10. CYMBALTA [Concomitant]
  11. BUPROPION (PBUPROPION) [Concomitant]
  12. ASPIRIN (ACETYLSALICYLIC ACID) [Concomitant]
  13. VITAMIN B12 /00056201/ (CYANOCOBALAMIN) [Concomitant]
  14. CALCIUM OYSTER SHELL /00108001/ (CALCIUM CARBONATE) [Concomitant]
  15. GLUCOSAMINE + CHONDROITIN (CHONDROITIN SULFATE, GLUCOSAMINE) [Concomitant]
  16. TRAMADOL HYDROCHLORIDE [Concomitant]
  17. CYCLOBENZAPRINE [Concomitant]
  18. ABILIFY [Concomitant]
  19. TOLMETIN (TOLMETIN) [Concomitant]
  20. LIDOCAINE [Concomitant]
  21. ERGOCALCIFEROL [Concomitant]
  22. EXCEDRIN /00391201/ (ACETYLSALICYLIC ACID, CAFFEINE, PARACETAMOL) [Concomitant]
  23. MULTIVITAMIN /00097801/ (ASCORBIC ACID, CALCIUM PANTOTHENATE, ERGOCALCIFEROL, NICOTINAMIDE, PYRIDOXI [Concomitant]
  24. PRILOSEC [Concomitant]
  25. OSCAL 500+D (CALCIUM CARBONATE, ERGOCALCIFEROL) [Concomitant]

REACTIONS (6)
  - Arthralgia [None]
  - Gait disturbance [None]
  - Treatment failure [None]
  - Stress fracture [None]
  - Femur fracture [None]
  - Fall [None]
